FAERS Safety Report 6732607-0 (Version None)
Quarter: 2010Q2

REPORT INFORMATION
  Report Type: 
  Country: None (occurrence: None)
  Receive Date: 20100519
  Receipt Date: 20100512
  Transmission Date: 20101027
  Serious: Yes (Hospitalization)
  Sender: FDA-Public Use
  Company Number: PHHO2010US07363

PATIENT
  Age: 16 Year
  Sex: Female

DRUGS (4)
  1. AFINITOR [Suspect]
     Indication: NEURILEMMOMA MALIGNANT
     Dosage: UNK
     Dates: start: 20100319, end: 20100427
  2. AVASTIN [Suspect]
     Indication: NEURILEMMOMA MALIGNANT
     Dosage: UNK
     Dates: start: 20100319, end: 20100427
  3. RAD [Suspect]
     Indication: NEURILEMMOMA MALIGNANT
     Dates: start: 20100427
  4. ENOXAPARIN SODIUM [Concomitant]

REACTIONS (5)
  - DEBRIDEMENT [None]
  - HYPOTENSION [None]
  - SKIN DISORDER [None]
  - TUMOUR HAEMORRHAGE [None]
  - TUMOUR NECROSIS [None]
